FAERS Safety Report 6295548-1 (Version None)
Quarter: 2009Q3

REPORT INFORMATION
  Report Type: 
  Country: None (occurrence: None)
  Receive Date: 20090731
  Receipt Date: 20090721
  Transmission Date: 20100115
  Serious: Yes (Other)
  Sender: FDA-Public Use
  Company Number: 2009AP002989

PATIENT
  Age: 98 Year
  Sex: Male

DRUGS (2)
  1. PAROXETINE HCL [Suspect]
     Indication: DEPRESSION
     Dosage: 10 MG, QD, PO, 20 MG, QD, PO
     Route: 048
  2. MIRTAZAPINE [Concomitant]

REACTIONS (2)
  - ABASIA [None]
  - FALL [None]
